FAERS Safety Report 16820118 (Version 1)
Quarter: 2019Q3

REPORT INFORMATION
  Report Type: Spontaneous
  Country: US (occurrence: US)
  Receive Date: 20190918
  Receipt Date: 20190918
  Transmission Date: 20191005
  Serious: Yes (Death, Life-Threatening, Hospitalization, Other)
  Sender: FDA-Public Use
  Company Number: US-AUROBINDO-AUR-APL-2019-058944

PATIENT

DRUGS (1)
  1. ACETAMINOPHEN. [Suspect]
     Active Substance: ACETAMINOPHEN
     Indication: PRODUCT USED FOR UNKNOWN INDICATION
     Dosage: 187.5 GRAM, IN TOTAL, INGESTION
     Route: 048

REACTIONS (9)
  - Acidosis [Unknown]
  - Intentional overdose [Fatal]
  - Cardiac arrest [Fatal]
  - Arrhythmia [Unknown]
  - Hepatotoxicity [Fatal]
  - Acute hepatic failure [Fatal]
  - Hepatic encephalopathy [Not Recovered/Not Resolved]
  - Hypotension [Unknown]
  - Coagulopathy [Fatal]
